FAERS Safety Report 5813323-6 (Version None)
Quarter: 2008Q3

REPORT INFORMATION
  Report Type: 
  Country: None (occurrence: None)
  Receive Date: 20080717
  Receipt Date: 20080710
  Transmission Date: 20090109
  Serious: Yes (Hospitalization)
  Sender: FDA-Public Use
  Company Number: JP-BRISTOL-MYERS SQUIBB COMPANY-12318432

PATIENT
  Age: 60 Year
  Sex: Male

DRUGS (4)
  1. ZERIT [Suspect]
     Indication: ACQUIRED IMMUNODEFICIENCY SYNDROME
     Dosage: INITIATED AT 60 MG DAILY, INCREASED TO 80 MG DAILY FROM 10JUN02 TO 18DEC02;DURATION (192 DAYS).
     Route: 048
     Dates: start: 20010823, end: 20020609
  2. STOCRIN CAPS [Suspect]
     Indication: ACQUIRED IMMUNODEFICIENCY SYNDROME
     Dosage: INITIATED AT 60 MG DAILY, INCREASED TO 80 MG DAILY ON 10-JUN-2002
     Route: 048
     Dates: start: 20010823, end: 20021218
  3. EPIVIR [Suspect]
     Indication: ACQUIRED IMMUNODEFICIENCY SYNDROME
     Dosage: ON 14-MAR-2003 THE DOSE WAS INCREASED TO 150 MG DAILY.
     Route: 048
     Dates: start: 20010823, end: 20021218
  4. DENOSINE [Concomitant]
     Route: 048
     Dates: start: 20011009, end: 20020609

REACTIONS (4)
  - BLOOD LACTIC ACID INCREASED [None]
  - DYSPEPSIA [None]
  - HYPERLIPIDAEMIA [None]
  - NEUROMYOPATHY [None]
